FAERS Safety Report 5623808-3 (Version None)
Quarter: 2008Q1

REPORT INFORMATION
  Report Type: 
  Country: None (occurrence: None)
  Receive Date: 20080207
  Receipt Date: 20080128
  Transmission Date: 20080703
  Serious: Yes (Hospitalization, Other)
  Sender: FDA-Public Use
  Company Number: 2007BI023371

PATIENT
  Age: 6 Year
  Sex: Female

DRUGS (5)
  1. AVONEX [Suspect]
     Indication: MULTIPLE SCLEROSIS
     Dosage: 30 UG; QW; IM
     Route: 030
     Dates: start: 20071006
  2. AVONEX [Suspect]
     Indication: RELAPSING-REMITTING MULTIPLE SCLEROSIS
     Dosage: 30 UG; QW; IM
     Route: 030
     Dates: start: 20071006
  3. ALENDRONATE SODIUM [Concomitant]
  4. FAMOTIDINE [Concomitant]
  5. NOVANTRONE [Concomitant]

REACTIONS (4)
  - CHILLS [None]
  - FEBRILE CONVULSION [None]
  - INFLUENZA LIKE ILLNESS [None]
  - PYREXIA [None]
